FAERS Safety Report 4486953-4 (Version None)
Quarter: 2004Q4

REPORT INFORMATION
  Report Type: 
  Country: None (occurrence: None)
  Receive Date: 20041022
  Receipt Date: 20041012
  Transmission Date: 20050328
  Serious: Yes (Hospitalization)
  Sender: FDA-Public Use
  Company Number: 2004233333JP

PATIENT
  Sex: Female

DRUGS (1)
  1. AROMASIN [Suspect]
     Indication: BREAST CANCER FEMALE
     Dosage: 25 MG, QD, ORAL
     Route: 048
     Dates: end: 20040901

REACTIONS (3)
  - METASTASES TO BONE [None]
  - MYALGIA [None]
  - SPINAL FRACTURE [None]
